FAERS Safety Report 25752104 (Version 1)
Quarter: 2025Q3

REPORT INFORMATION
  Report Type: Spontaneous
  Country: US (occurrence: US)
  Receive Date: 20250902
  Receipt Date: 20250902
  Transmission Date: 20251020
  Serious: No
  Sender: Alora Pharma
  Company Number: US-OSMOTICA PHARMACEUTICALS-2025ALO00022

PATIENT
  Age: 43 Year
  Sex: Female
  Weight: 103.4 kg

DRUGS (3)
  1. HYDROMORPHONE HYDROCHLORIDE [Suspect]
     Active Substance: HYDROMORPHONE HYDROCHLORIDE
     Indication: Scoliosis
     Dosage: 16 MG, 4X/DAY
     Route: 048
  2. HYDROMORPHONE HYDROCHLORIDE [Suspect]
     Active Substance: HYDROMORPHONE HYDROCHLORIDE
     Indication: Back pain
  3. HYDROMORPHONE HYDROCHLORIDE [Suspect]
     Active Substance: HYDROMORPHONE HYDROCHLORIDE
     Indication: Torticollis

REACTIONS (2)
  - Product residue present [Unknown]
  - Drug delivery system issue [Unknown]

NARRATIVE: CASE EVENT DATE: 20250106
